FAERS Safety Report 24651073 (Version 1)
Quarter: 2024Q4

REPORT INFORMATION
  Report Type: Spontaneous
  Country: GB (occurrence: GB)
  Receive Date: 20241122
  Receipt Date: 20241122
  Transmission Date: 20250115
  Serious: Yes (Hospitalization, Other)
  Sender: TEVA
  Company Number: None

PATIENT
  Age: 35 Year
  Sex: Female

DRUGS (15)
  1. OLANZAPINE [Suspect]
     Active Substance: OLANZAPINE
     Dosage: AT NIGHT
     Route: 065
  2. SPIRONOLACTONE [Concomitant]
     Active Substance: SPIRONOLACTONE
  3. LANSOPRAZOLE [Concomitant]
     Active Substance: LANSOPRAZOLE
  4. ACETAMINOPHEN [Concomitant]
     Active Substance: ACETAMINOPHEN
  5. SERTRALINE [Concomitant]
     Active Substance: SERTRALINE HYDROCHLORIDE
  6. CARVEDILOL [Concomitant]
     Active Substance: CARVEDILOL
  7. FERROUS FUMARATE [Concomitant]
     Active Substance: FERROUS FUMARATE
  8. CHOLECALCIFEROL [Concomitant]
     Active Substance: CHOLECALCIFEROL
  9. LANOLIN\LIGHT MINERAL OIL\PARAFFIN [Concomitant]
     Active Substance: LANOLIN\LIGHT MINERAL OIL\PARAFFIN
  10. LACTULOSE [Concomitant]
     Active Substance: LACTULOSE
  11. THIAMINE [Concomitant]
     Active Substance: THIAMINE
  12. MIRTAZAPINE [Concomitant]
     Active Substance: MIRTAZAPINE
  13. ACAMPROSATE [Concomitant]
     Active Substance: ACAMPROSATE
  14. CHOLESTYRAMINE [Concomitant]
     Active Substance: CHOLESTYRAMINE
  15. IBUPROFEN [Concomitant]
     Active Substance: IBUPROFEN

REACTIONS (1)
  - Electrocardiogram QT prolonged [Unknown]
